FAERS Safety Report 6240374-2 (Version None)
Quarter: 2009Q2

REPORT INFORMATION
  Report Type: 
  Country: None (occurrence: None)
  Receive Date: 20090623
  Receipt Date: 20080604
  Transmission Date: 20091009
  Serious: No
  Sender: FDA-Public Use
  Company Number: US-ASTRAZENECA-2008UW11222

PATIENT
  Age: 58 Year
  Sex: Female
  Weight: 72.6 kg

DRUGS (3)
  1. PULMICORT FLEXHALER [Suspect]
     Indication: ASTHMA
     Route: 055
     Dates: start: 20080603
  2. CLONAZEPAM [Concomitant]
  3. NATURAL THYROID SUPPORT [Concomitant]

REACTIONS (4)
  - COORDINATION ABNORMAL [None]
  - DYSPHONIA [None]
  - FEELING ABNORMAL [None]
  - MUSCULAR WEAKNESS [None]
